FAERS Safety Report 17832335 (Version 1)
Quarter: 2020Q2

REPORT INFORMATION
  Report Type: Spontaneous
  Country: US (occurrence: US)
  Receive Date: 20200527
  Receipt Date: 20200527
  Transmission Date: 20200714
  Serious: No
  Sender: FDA-Public Use
  Company Number: US-ROCHE-2500044

PATIENT
  Age: 45 Year
  Sex: Female
  Weight: 90.8 kg

DRUGS (2)
  1. BACLOFEN. [Concomitant]
     Active Substance: BACLOFEN
     Dosage: ONGOING:YES
     Route: 065
  2. OCREVUS [Suspect]
     Active Substance: OCRELIZUMAB
     Indication: RELAPSING-REMITTING MULTIPLE SCLEROSIS
     Dosage: ONGOING:NO
     Route: 042
     Dates: start: 20170601

REACTIONS (15)
  - Influenza like illness [Recovered/Resolved]
  - Pain [Recovered/Resolved]
  - Myelocyte count increased [Recovered/Resolved]
  - Rash [Recovered/Resolved]
  - Memory impairment [Not Recovered/Not Resolved]
  - Drug hypersensitivity [Recovered/Resolved]
  - Pyrexia [Recovered/Resolved]
  - Aphthous ulcer [Recovered/Resolved]
  - Infection [Recovered/Resolved]
  - Monocyte count increased [Recovered/Resolved]
  - Flushing [Recovered/Resolved]
  - Malaise [Recovered/Resolved]
  - Irritability [Recovered/Resolved]
  - Neutrophil count decreased [Recovered/Resolved]
  - Swelling [Recovered/Resolved]

NARRATIVE: CASE EVENT DATE: 20190719
